FAERS Safety Report 12453336 (Version 1)
Quarter: 2016Q2

REPORT INFORMATION
  Report Type: Spontaneous
  Country: US (occurrence: US)
  Receive Date: 20160609
  Receipt Date: 20160609
  Transmission Date: 20160815
  Serious: Yes (Hospitalization)
  Sender: FDA-Public Use
  Company Number: US-TEVA-665366USA

PATIENT
  Age: 14 Year
  Sex: Female

DRUGS (4)
  1. RISPERIDONE. [Concomitant]
     Active Substance: RISPERIDONE
     Indication: AUTISM SPECTRUM DISORDER
     Route: 065
  2. RISPERIDONE. [Concomitant]
     Active Substance: RISPERIDONE
     Indication: LEARNING DISABILITY
  3. CLONIDINE. [Suspect]
     Active Substance: CLONIDINE
     Indication: AUTISM SPECTRUM DISORDER
     Route: 048
  4. CLONIDINE. [Suspect]
     Active Substance: CLONIDINE
     Indication: LEARNING DISABILITY

REACTIONS (6)
  - Toxicity to various agents [Recovered/Resolved]
  - Mental disorder [Recovered/Resolved]
  - Drug administered to patient of inappropriate age [Unknown]
  - Incorrect route of drug administration [Unknown]
  - Hypotension [Recovered/Resolved]
  - Off label use [Unknown]
